FAERS Safety Report 19688794 (Version 2)
Quarter: 2021Q4

REPORT INFORMATION
  Report Type: Spontaneous
  Country: US (occurrence: US)
  Receive Date: 20210811
  Receipt Date: 20211025
  Transmission Date: 20220303
  Serious: No
  Sender: FDA-Public Use
  Company Number: US-SA-SAC20210809000181

PATIENT
  Age: 72 Year
  Sex: Female
  Weight: 47.62 kg

DRUGS (1)
  1. DUPIXENT [Suspect]
     Active Substance: DUPILUMAB
     Indication: Dermatitis atopic
     Dosage: 300 MG, QOW
     Route: 058
     Dates: start: 202106, end: 20210715

REACTIONS (8)
  - Hypertension [Recovering/Resolving]
  - Nausea [Recovering/Resolving]
  - Epistaxis [Recovering/Resolving]
  - Vertigo [Recovering/Resolving]
  - Headache [Unknown]
  - Dizziness [Unknown]
  - Alopecia [Recovering/Resolving]
  - Rash [Recovered/Resolved]

NARRATIVE: CASE EVENT DATE: 20210101
